FAERS Safety Report 22043879 (Version 3)
Quarter: 2023Q1

REPORT INFORMATION
  Report Type: Spontaneous
  Country: US (occurrence: US)
  Receive Date: 20230228
  Receipt Date: 20230325
  Transmission Date: 20230418
  Serious: No
  Sender: FDA-Public Use
  Company Number: US-UNITED THERAPEUTICS-UNT-2023-005544

PATIENT
  Sex: Male
  Weight: 79.365 kg

DRUGS (4)
  1. REMODULIN [Suspect]
     Active Substance: TREPROSTINIL
     Indication: Pulmonary arterial hypertension
     Dosage: 0.050 ?G/KG, CONTINUING
     Route: 041
  2. REMODULIN [Suspect]
     Active Substance: TREPROSTINIL
     Dosage: UNK, CONTINUING
     Route: 041
     Dates: start: 20210308
  3. OPSUMIT [Concomitant]
     Active Substance: MACITENTAN
     Indication: Product used for unknown indication
     Dosage: UNK
     Route: 065
     Dates: end: 202303
  4. XARELTO [Concomitant]
     Active Substance: RIVAROXABAN
     Indication: Product used for unknown indication
     Dosage: UNK
     Route: 065

REACTIONS (9)
  - Dyspnoea exertional [Unknown]
  - Tremor [Unknown]
  - Dizziness [Unknown]
  - Fatigue [Not Recovered/Not Resolved]
  - Inguinal hernia [Unknown]
  - Back pain [Unknown]
  - Nausea [Unknown]
  - Vomiting [Unknown]
  - Decreased appetite [Unknown]
